FAERS Safety Report 16274089 (Version 1)
Quarter: 2019Q2

REPORT INFORMATION
  Report Type: Report from Study
  Country: US (occurrence: US)
  Receive Date: 20190504
  Receipt Date: 20190504
  Transmission Date: 20190711
  Serious: Yes (Other)
  Sender: FDA-Public Use
  Company Number: US-ROCHE-2311936

PATIENT
  Sex: Female

DRUGS (16)
  1. CARBOPLATIN. [Concomitant]
     Active Substance: CARBOPLATIN
  2. FASLODEX [Concomitant]
     Active Substance: FULVESTRANT
  3. TUCATINIB [Concomitant]
     Active Substance: TUCATINIB
  4. ANASTROZOLE. [Concomitant]
     Active Substance: ANASTROZOLE
  5. DOXORUBICIN [Concomitant]
     Active Substance: DOXORUBICIN
  6. CAPECITABINE. [Concomitant]
     Active Substance: CAPECITABINE
     Route: 048
  7. TRASTUZUMAB. [Concomitant]
     Active Substance: TRASTUZUMAB
     Route: 065
  8. PACLITAXEL. [Concomitant]
     Active Substance: PACLITAXEL
  9. TAMOXIFEN [Concomitant]
     Active Substance: TAMOXIFEN
  10. LETROZOLE. [Concomitant]
     Active Substance: LETROZOLE
  11. CYCLOPHOSPHAMIDE. [Concomitant]
     Active Substance: CYCLOPHOSPHAMIDE
  12. LAPATINIB [Concomitant]
     Active Substance: LAPATINIB
  13. TUCATINIB [Concomitant]
     Active Substance: TUCATINIB
  14. TRASTUZUMAB EMTANSINE [Suspect]
     Active Substance: ADO-TRASTUZUMAB EMTANSINE
     Indication: HER-2 POSITIVE BREAST CANCER
     Route: 065
  15. ABRAXANE [Concomitant]
     Active Substance: PACLITAXEL
  16. EXEMESTANE. [Concomitant]
     Active Substance: EXEMESTANE

REACTIONS (1)
  - Radiation necrosis [Unknown]
